FAERS Safety Report 4979458-5 (Version None)
Quarter: 2006Q2

REPORT INFORMATION
  Report Type: 
  Country: None (occurrence: None)
  Receive Date: 20060421
  Receipt Date: 20060316
  Transmission Date: 20061013
  Serious: Yes (Death)
  Sender: FDA-Public Use
  Company Number: US-AMGEN-STX172650

PATIENT
  Sex: Female

DRUGS (5)
  1. ENBREL [Suspect]
     Indication: PSORIASIS
     Route: 030
     Dates: start: 20040824, end: 20060307
  2. DOVONEX [Concomitant]
     Route: 061
     Dates: start: 20050201
  3. TEMOVATE [Concomitant]
     Route: 061
     Dates: start: 20050609
  4. BACTRIM DS [Concomitant]
     Route: 048
     Dates: start: 20050609, end: 20050709
  5. TRIAMCINOLONE [Concomitant]
     Route: 061
     Dates: start: 20041101

REACTIONS (1)
  - THROMBOSIS [None]
